FAERS Safety Report 23943135 (Version 2)
Quarter: 2024Q4

REPORT INFORMATION
  Report Type: Report from Study
  Country: US (occurrence: US)
  Receive Date: 20240605
  Receipt Date: 20241003
  Transmission Date: 20250115
  Serious: Yes (Hospitalization)
  Sender: BIOGEN
  Company Number: US-BIOGEN-2024BI01266514

PATIENT
  Sex: Male

DRUGS (1)
  1. TYSABRI [Suspect]
     Active Substance: NATALIZUMAB
     Indication: Multiple sclerosis
     Route: 050
     Dates: start: 20190405, end: 20240329

REACTIONS (7)
  - Skin necrosis [Not Recovered/Not Resolved]
  - White blood cell count decreased [Unknown]
  - Ulcer [Not Recovered/Not Resolved]
  - Nephrolithiasis [Unknown]
  - Weight decreased [Unknown]
  - Urinary tract infection [Not Recovered/Not Resolved]
  - White blood cell count increased [Unknown]
